FAERS Safety Report 7182998-4 (Version None)
Quarter: 2010Q4

REPORT INFORMATION
  Report Type: 
  Country: None (occurrence: None)
  Receive Date: 20101222
  Receipt Date: 20101217
  Transmission Date: 20110411
  Serious: Yes (Other)
  Sender: FDA-Public Use
  Company Number: US-PFIZER INC-2010174593

PATIENT
  Sex: Female
  Weight: 70.295 kg

DRUGS (2)
  1. CHANTIX [Suspect]
     Indication: SMOKING CESSATION THERAPY
     Dosage: 1 MG, 2X/DAY
     Route: 048
     Dates: start: 20101217
  2. NUVARING [Concomitant]
     Indication: CONTRACEPTION
     Dosage: UNK
     Route: 067

REACTIONS (6)
  - ANXIETY [None]
  - FEAR [None]
  - NIGHTMARE [None]
  - PALPITATIONS [None]
  - THINKING ABNORMAL [None]
  - TREMOR [None]
